FAERS Safety Report 6195630-3 (Version None)
Quarter: 2009Q2

REPORT INFORMATION
  Report Type: 
  Country: None (occurrence: None)
  Receive Date: 20090519
  Receipt Date: 20090507
  Transmission Date: 20091009
  Serious: Yes (Other)
  Sender: FDA-Public Use
  Company Number: US-ELI_LILLY_AND_COMPANY-US200902004824

PATIENT
  Age: 57 Year
  Sex: Female
  Weight: 63.039 kg

DRUGS (5)
  1. CYMBALTA [Suspect]
     Indication: DEPRESSION
     Dosage: 60 MG, DAILY (1/D)
     Dates: start: 20080101, end: 20080728
  2. COUMADIN [Concomitant]
     Indication: HEART VALVE REPLACEMENT
  3. DIOVAN [Concomitant]
     Indication: HYPERTENSION
  4. PHENOBARBITAL [Concomitant]
     Indication: CONVULSION
  5. CRANBERRY [Concomitant]
     Indication: URINARY TRACT DISORDER

REACTIONS (3)
  - HAEMORRHAGE [None]
  - INTERNATIONAL NORMALISED RATIO INCREASED [None]
  - LIVER DISORDER [None]
